FAERS Safety Report 5525886-9 (Version None)
Quarter: 2007Q4

REPORT INFORMATION
  Report Type: 
  Country: None (occurrence: None)
  Receive Date: 20071126
  Receipt Date: 20071114
  Transmission Date: 20080405
  Serious: Yes (Hospitalization)
  Sender: FDA-Public Use
  Company Number: DE-PFIZER INC-2007090075

PATIENT
  Sex: Male
  Weight: 70 kg

DRUGS (16)
  1. SU-011,248 [Suspect]
     Indication: METASTATIC RENAL CELL CARCINOMA
     Route: 048
  2. SU-011,248 [Suspect]
     Route: 048
     Dates: start: 20060420, end: 20060612
  3. SU-011,248 [Suspect]
     Route: 048
  4. COAPROVEL [Concomitant]
     Indication: HYPERTENSION
     Dates: start: 19990101, end: 20070420
  5. CLOPIDOGREL [Concomitant]
     Indication: CORONARY ARTERY DISEASE
     Dates: start: 19990101
  6. MOXONIDINE [Concomitant]
     Indication: HYPERTENSION
     Dates: start: 19990101
  7. METOPROLOL [Concomitant]
     Indication: HYPERTENSION
     Dates: start: 19990101
  8. SIMVASTATIN [Concomitant]
     Indication: PROPHYLAXIS
     Dates: start: 19990101
  9. RAMIPRIL [Concomitant]
     Indication: CORONARY ARTERY DISEASE
     Dates: start: 19990101
  10. PANTOPRAZOL [Concomitant]
     Indication: PROPHYLAXIS
     Dates: start: 20060410
  11. ALLOPURINOL [Concomitant]
     Indication: HYPERURICAEMIA
     Dates: start: 20070509
  12. PERENTEROL [Concomitant]
     Indication: DIARRHOEA
  13. LOPERAMID [Concomitant]
     Indication: DIARRHOEA
     Dates: start: 20060626
  14. TORSEMIDE [Concomitant]
     Indication: BLOOD UREA INCREASED
     Dates: start: 20070420, end: 20070508
  15. IRBESARTAN [Concomitant]
     Indication: HYPERTENSION
  16. NIFEDIPINE [Concomitant]
     Indication: HYPERTENSION
     Dates: start: 20071023, end: 20071023

REACTIONS (2)
  - DYSPNOEA [None]
  - PLEURAL EFFUSION [None]
